FAERS Safety Report 4511722-6 (Version None)
Quarter: 2004Q4

REPORT INFORMATION
  Report Type: 
  Country: None (occurrence: None)
  Receive Date: 20041129
  Receipt Date: 20041115
  Transmission Date: 20050328
  Serious: Yes (Hospitalization)
  Sender: FDA-Public Use
  Company Number: 200414288FR

PATIENT
  Age: 73 Year
  Sex: Male

DRUGS (3)
  1. LASILIX [Suspect]
     Indication: ESSENTIAL HYPERTENSION
     Route: 048
     Dates: end: 20040923
  2. COVERSYL [Suspect]
     Indication: ESSENTIAL HYPERTENSION
     Route: 048
     Dates: end: 20040923
  3. VIOXX [Suspect]
     Indication: OSTEOARTHRITIS
     Route: 048
     Dates: end: 20040923

REACTIONS (5)
  - BLOOD BICARBONATE DECREASED [None]
  - HAEMATURIA [None]
  - HYPERKALAEMIA [None]
  - PROTEINURIA [None]
  - RENAL FAILURE ACUTE [None]
